FAERS Safety Report 9739216 (Version 2)
Quarter: 2014Q1

REPORT INFORMATION
  Report Type: Spontaneous
  Country: US (occurrence: US)
  Receive Date: 20131209
  Receipt Date: 20140116
  Transmission Date: 20141002
  Serious: No
  Sender: FDA-Public Use
  Company Number: US-SHIRE-ALL1-2013-08286

PATIENT
  Age: 12 Year
  Sex: Male
  Weight: 37.82 kg

DRUGS (11)
  1. VYVANSE [Suspect]
     Indication: ATTENTION DEFICIT/HYPERACTIVITY DISORDER
     Dosage: 40 MG, 1X/DAY:QD
     Route: 048
  2. VYVANSE [Suspect]
     Dosage: 50 MG, UNKNOWN
     Route: 048
  3. VYVANSE [Suspect]
     Dosage: 60 MG, UNKNOWN
     Route: 048
  4. VYVANSE [Suspect]
     Dosage: 70 MG, 1X/DAY:QD
     Route: 048
     Dates: start: 20130920, end: 20131126
  5. INTUNIV [Suspect]
     Indication: ATTENTION DEFICIT/HYPERACTIVITY DISORDER
     Dosage: 1 MG, 1X/DAY:QD (Q HS)
     Route: 048
     Dates: start: 20131120
  6. INTUNIV [Suspect]
     Dosage: 3 MG, UNKNOWN
     Route: 048
  7. OLANZAPINE [Concomitant]
     Indication: FEELING OF RELAXATION
     Dosage: 2.5 MG, 1X/DAY:QD (Q AM)
     Route: 065
  8. OLANZAPINE [Concomitant]
     Indication: SLEEP DISORDER
     Dosage: 2.5 MG, 1X/DAY:QD (Q 4PM)
  9. OLANZAPINE [Concomitant]
     Dosage: 5 MG, 1X/DAY:QD (Q HS)
  10. OLANZAPINE [Concomitant]
     Dosage: UNK, UNKNOWN
     Route: 065
  11. STRATTERA [Concomitant]
     Dosage: UNK, UNKNOWN
     Route: 065
     Dates: start: 20131219

REACTIONS (2)
  - Abnormal loss of weight [Recovered/Resolved]
  - Drug ineffective [Unknown]
